FAERS Safety Report 8270554-6 (Version None)
Quarter: 2012Q2

REPORT INFORMATION
  Report Type: 
  Country: None (occurrence: None)
  Receive Date: 20120410
  Receipt Date: 20120329
  Transmission Date: 20120825
  Serious: Yes (Hospitalization, Other)
  Sender: FDA-Public Use
  Company Number: DE-BRISTOL-MYERS SQUIBB COMPANY-16386765

PATIENT
  Age: 60 Year
  Sex: Male

DRUGS (5)
  1. YERVOY [Suspect]
     Indication: METASTATIC MALIGNANT MELANOMA
     Dates: start: 20120101
  2. RANITIDINE [Concomitant]
  3. ZOPICLONE [Concomitant]
  4. PREDNISONE TAB [Concomitant]
  5. BISOPROLOL FUMARATE [Concomitant]

REACTIONS (7)
  - PNEUMONITIS [None]
  - DISEASE RECURRENCE [None]
  - METASTASES TO LUNG [None]
  - MUSCULAR SARCOIDOSIS [None]
  - MUSCULOSKELETAL STIFFNESS [None]
  - FATIGUE [None]
  - MYALGIA [None]
